FAERS Safety Report 9746261 (Version 2)
Quarter: 2013Q4

REPORT INFORMATION
  Report Type: Report from Study
  Country: HR (occurrence: HR)
  Receive Date: 20131211
  Receipt Date: 20131211
  Transmission Date: 20140711
  Serious: Yes (Hospitalization)
  Sender: FDA-Public Use
  Company Number: HR-SA-CAMP-1002197

PATIENT
  Age: 58 Year
  Sex: Female
  Weight: 49.1 kg

DRUGS (10)
  1. ALEMTUZUMAB [Suspect]
     Indication: MULTIPLE SCLEROSIS
     Dosage: 12 MG, QD
     Route: 042
     Dates: start: 20110307, end: 20110309
  2. ALEMTUZUMAB [Suspect]
     Indication: MULTIPLE SCLEROSIS
     Dosage: 12 MG, QD
     Route: 042
     Dates: start: 20100217, end: 20100221
  3. REBIF [Concomitant]
     Indication: MULTIPLE SCLEROSIS
     Dosage: 44 MCG, UNK
     Dates: start: 20030505, end: 20060503
  4. METHYLPREDNISOLONE [Concomitant]
     Indication: MULTIPLE SCLEROSIS
     Dosage: 1 G, QD
     Dates: start: 20120217, end: 20120219
  5. METHYLPREDNISOLONE [Concomitant]
     Indication: MULTIPLE SCLEROSIS
     Dosage: 1000 MG, QD
     Route: 042
     Dates: start: 20110826, end: 20110830
  6. SYNOPEN [Concomitant]
     Indication: PROPHYLAXIS
     Dosage: 20 MG, PRN
     Route: 030
     Dates: start: 20110307, end: 20110309
  7. ACYCLOVIR [Concomitant]
     Indication: PROPHYLAXIS
     Dosage: 200 MG, BID
     Route: 048
     Dates: start: 20110307, end: 20110406
  8. CONTROLOC [Concomitant]
     Indication: ADVERSE EVENT
     Dosage: 40 MG, QD
     Route: 048
     Dates: start: 20100810, end: 20100812
  9. CIPRALEX [Concomitant]
     Indication: ADVERSE EVENT
     Dosage: 5 MG, QD
     Route: 048
     Dates: start: 20100219
  10. LUPOCET [Concomitant]
     Indication: ADVERSE EVENT
     Dosage: 500 MG, BID
     Route: 048
     Dates: start: 20100220, end: 20100220

REACTIONS (1)
  - Glomerulonephritis membranous [Recovered/Resolved]
